FAERS Safety Report 13739698 (Version 1)
Quarter: 2017Q3

REPORT INFORMATION
  Report Type: Spontaneous
  Country: BR (occurrence: BR)
  Receive Date: 20170710
  Receipt Date: 20170710
  Transmission Date: 20171127
  Serious: Yes (Other)
  Sender: FDA-Public Use
  Company Number: PHHY2016BR083763

PATIENT
  Age: 33 Year
  Sex: Female
  Weight: 110 kg

DRUGS (3)
  1. HYDERGINE [Suspect]
     Active Substance: ERGOLOID MESYLATES
     Dosage: 0.5 DF, (SPLITTING THE TABLET IN HALF)
     Route: 048
  2. LEVOTHYROXINE. [Concomitant]
     Active Substance: LEVOTHYROXINE
     Indication: HYPOTHYROIDISM
     Dosage: 1 DF, QD
     Route: 048
  3. HYDERGINE [Suspect]
     Active Substance: ERGOLOID MESYLATES
     Indication: BRAIN MALFORMATION
     Dosage: 1 DF, QD
     Route: 048
     Dates: start: 201505

REACTIONS (6)
  - Maternal exposure during pregnancy [Unknown]
  - Headache [Unknown]
  - Product use in unapproved indication [Unknown]
  - Malaise [Unknown]
  - Wrong technique in product usage process [Unknown]
  - Haemorrhage in pregnancy [Unknown]

NARRATIVE: CASE EVENT DATE: 201603
